FAERS Safety Report 13245546 (Version 1)
Quarter: 2017Q1

REPORT INFORMATION
  Report Type: Spontaneous
  Country: US (occurrence: US)
  Receive Date: 20170217
  Receipt Date: 20170217
  Transmission Date: 20170428
  Serious: No
  Sender: FDA-Public Use
  Company Number: US-LUPIN PHARMACEUTICALS INC.-E2B_00006925

PATIENT
  Sex: Female
  Weight: 54.48 kg

DRUGS (1)
  1. CELECOXIB 100 MG [Suspect]
     Active Substance: CELECOXIB
     Indication: ARTHRITIS
     Route: 048

REACTIONS (2)
  - Drug ineffective [Unknown]
  - Pain in extremity [Not Recovered/Not Resolved]
